FAERS Safety Report 20289964 (Version 1)
Quarter: 2022Q1

REPORT INFORMATION
  Report Type: Spontaneous
  Country: JM (occurrence: JM)
  Receive Date: 20220104
  Receipt Date: 20220104
  Transmission Date: 20220423
  Serious: Yes (Death)
  Sender: FDA-Public Use
  Company Number: JM-NOVARTISPH-NVSC2021JM273063

PATIENT
  Age: 91 Year
  Sex: Female

DRUGS (2)
  1. GLIVEC [Suspect]
     Active Substance: IMATINIB MESYLATE
     Indication: Chronic myeloid leukaemia
     Dosage: 400 MG (1 X 400 MG TABLET)
     Route: 065
  2. GLIVEC [Suspect]
     Active Substance: IMATINIB MESYLATE
     Dosage: 200 MG (2X 100 MG TABLETS)
     Route: 065

REACTIONS (3)
  - Death [Fatal]
  - Full blood count decreased [Unknown]
  - Diarrhoea [Unknown]

NARRATIVE: CASE EVENT DATE: 20211220
